FAERS Safety Report 14343206 (Version 5)
Quarter: 2018Q1

REPORT INFORMATION
  Report Type: Report from Study
  Country: US (occurrence: US)
  Receive Date: 20180102
  Receipt Date: 20180222
  Transmission Date: 20180509
  Serious: Yes (Death, Hospitalization, Other)
  Sender: FDA-Public Use
  Company Number: US-GILEAD-2017-0313067

PATIENT
  Age: 79 Year
  Sex: Male

DRUGS (41)
  1. TYVASO [Concomitant]
     Active Substance: TREPROSTINIL
  2. LASIX [Concomitant]
     Active Substance: FUROSEMIDE
  3. LIPITOR [Concomitant]
     Active Substance: ATORVASTATIN CALCIUM
  4. LORATADINE. [Concomitant]
     Active Substance: LORATADINE
  5. METOPROLOL. [Concomitant]
     Active Substance: METOPROLOL
  6. DEXTROSE. [Concomitant]
     Active Substance: DEXTROSE
  7. LORAZEPAM. [Concomitant]
     Active Substance: LORAZEPAM
  8. ADEMPAS [Concomitant]
     Active Substance: RIOCIGUAT
  9. POTASSIUM CHLORIDE. [Concomitant]
     Active Substance: POTASSIUM CHLORIDE
  10. DUONEB [Concomitant]
     Active Substance: ALBUTEROL SULFATE\IPRATROPIUM BROMIDE
  11. FLUTICASONE;VILANTEROL [Concomitant]
  12. ACETAMINOPHEN. [Concomitant]
     Active Substance: ACETAMINOPHEN
  13. ASPIRIN                            /00002701/ [Suspect]
     Active Substance: ASPIRIN
     Indication: PRODUCT USED FOR UNKNOWN INDICATION
     Route: 065
  14. ADVAIR HFA [Concomitant]
     Active Substance: FLUTICASONE PROPIONATE\SALMETEROL XINAFOATE
  15. INCRUSE ELLIPTA [Concomitant]
     Active Substance: UMECLIDINIUM BROMIDE
  16. ENABLEX [Concomitant]
     Active Substance: DARIFENACIN HYDROBROMIDE
  17. PIPERACILLIN AND TAZOBACTAM [Concomitant]
     Active Substance: PIPERACILLIN SODIUM\TAZOBACTAM SODIUM
  18. JANUVIA [Concomitant]
     Active Substance: SITAGLIPTIN PHOSPHATE
  19. BENZONATATE. [Concomitant]
     Active Substance: BENZONATATE
  20. HEPARIN [Concomitant]
     Active Substance: HEPARIN SODIUM
  21. POLYETHYLENE GLYCOL [Concomitant]
     Active Substance: POLYETHYLENE GLYCOLS
  22. LOVENOX [Suspect]
     Active Substance: ENOXAPARIN SODIUM
     Indication: PRODUCT USED FOR UNKNOWN INDICATION
     Route: 065
  23. GUAIFENESIN. [Concomitant]
     Active Substance: GUAIFENESIN
  24. MUCOMYST [Concomitant]
     Active Substance: ACETYLCYSTEINE
  25. SALINE                             /00075401/ [Concomitant]
     Active Substance: SODIUM CHLORIDE
  26. VANCOMYCIN [Concomitant]
     Active Substance: VANCOMYCIN
  27. AMBRISENTAN [Suspect]
     Active Substance: AMBRISENTAN
     Indication: PULMONARY ARTERIAL HYPERTENSION
     Dosage: 10 MG, QD
     Route: 048
     Dates: start: 20131218
  28. ALLOPURINOL. [Concomitant]
     Active Substance: ALLOPURINOL
  29. ENABLEX [Concomitant]
     Active Substance: DARIFENACIN HYDROBROMIDE
  30. PRIMIDONE. [Concomitant]
     Active Substance: PRIMIDONE
  31. CARBAMIDE PEROXIDE [Concomitant]
     Active Substance: CARBAMIDE PEROXIDE
  32. MORPHINE [Concomitant]
     Active Substance: MORPHINE
  33. PANTOPRAZOLE [Concomitant]
     Active Substance: PANTOPRAZOLE
  34. ONDANSETRON [Concomitant]
     Active Substance: ONDANSETRON
  35. WARFARIN [Concomitant]
     Active Substance: WARFARIN
  36. ATORVASTATIN [Concomitant]
     Active Substance: ATORVASTATIN
  37. INSULIN [Concomitant]
     Active Substance: INSULIN NOS
  38. SPIRONOLACTONE. [Concomitant]
     Active Substance: SPIRONOLACTONE
  39. GLUCAGON. [Concomitant]
     Active Substance: GLUCAGON
  40. GLUCOSE [Concomitant]
     Active Substance: DEXTROSE
  41. TEMAZEPAM. [Concomitant]
     Active Substance: TEMAZEPAM

REACTIONS (3)
  - Pulmonary haemorrhage [Fatal]
  - Pneumonia [Fatal]
  - Respiratory failure [Fatal]

NARRATIVE: CASE EVENT DATE: 20171217
